FAERS Safety Report 7908328-5 (Version None)
Quarter: 2011Q4

REPORT INFORMATION
  Report Type: 
  Country: None (occurrence: None)
  Receive Date: 20111111
  Receipt Date: 20111103
  Transmission Date: 20120403
  Serious: No
  Sender: FDA-Public Use
  Company Number: US-BIOGENIDEC-2011BI042644

PATIENT
  Sex: Female

DRUGS (4)
  1. TYSABRI [Concomitant]
     Indication: MULTIPLE SCLEROSIS
     Route: 042
     Dates: start: 20070723, end: 20081216
  2. AVONEX [Suspect]
     Route: 030
     Dates: start: 20100923, end: 20110809
  3. AVONEX [Suspect]
     Route: 030
     Dates: start: 20010203, end: 20060605
  4. AVONEX [Suspect]
     Indication: MULTIPLE SCLEROSIS
     Route: 030
     Dates: start: 20100901

REACTIONS (5)
  - INFLUENZA LIKE ILLNESS [None]
  - WEIGHT INCREASED [None]
  - RASH [None]
  - GAIT DISTURBANCE [None]
  - FATIGUE [None]
